FAERS Safety Report 19428294 (Version 1)
Quarter: 2021Q2

REPORT INFORMATION
  Report Type: Spontaneous
  Country: CN (occurrence: CN)
  Receive Date: 20210617
  Receipt Date: 20210617
  Transmission Date: 20210717
  Serious: Yes (Hospitalization)
  Sender: FDA-Public Use
  Company Number: CN-BAXTER-2021BAX016081

PATIENT
  Age: 51 Year
  Sex: Female
  Weight: 58 kg

DRUGS (5)
  1. ENDOXAN [Suspect]
     Active Substance: CYCLOPHOSPHAMIDE
     Indication: BREAST CANCER
     Dosage: DAY 1: ENDOXAN 900 MG + 0.9% SODIUM CHLORIDE INJECTION 100 ML; Q14D
     Route: 041
     Dates: start: 20210524, end: 20210524
  2. 0.9% SODIUM CHLORIDE INJECTION [Suspect]
     Active Substance: SODIUM CHLORIDE
     Indication: MEDICATION DILUTION
     Dosage: DAY 1: ENDOXAN 900 MG + 0.9% SODIUM CHLORIDE INJECTION 100 ML; Q14D
     Route: 041
     Dates: start: 20210524, end: 20210524
  3. 5% GLUCOSE  INJECTION [Suspect]
     Active Substance: DEXTROSE
     Indication: MEDICATION DILUTION
     Dosage: DAY 1: PIRARUBICIN HYDROCHLORIDE 90 MG + 5% GLUCOSE INJECTION 100 ML; Q14D
     Route: 041
     Dates: start: 20210524, end: 20210524
  4. PIRARUBICIN HYDROCHLORIDE [Suspect]
     Active Substance: PIRARUBICIN HYDROCHLORIDE
     Indication: BREAST CANCER
     Dosage: DAY 1: PIRARUBICIN HYDROCHLORIDE 90 MG + 5% GLUCOSE INJECTION 100 ML; Q14D
     Route: 041
     Dates: start: 20210524, end: 20210524
  5. RECOMBINANT HUMAN GRANULOCYTE COLONY?STIMULATING FACTOR [Concomitant]
     Active Substance: GRANULOCYTE COLONY-STIMULATING FACTOR NOS
     Indication: PROPHYLAXIS
     Dosage: 3 VIALS
     Route: 058
     Dates: start: 20210525

REACTIONS (1)
  - Myelosuppression [Recovering/Resolving]

NARRATIVE: CASE EVENT DATE: 20210601
